FAERS Safety Report 19691060 (Version 1)
Quarter: 2021Q3

REPORT INFORMATION
  Report Type: Spontaneous
  Country: US (occurrence: US)
  Receive Date: 20210812
  Receipt Date: 20210812
  Transmission Date: 20211014
  Serious: No
  Sender: FDA-Public Use
  Company Number: None

PATIENT
  Age: 56 Year
  Sex: Female

DRUGS (1)
  1. AJOVY [Suspect]
     Active Substance: FREMANEZUMAB-VFRM
     Indication: MIGRAINE
     Dosage: ?          OTHER DOSE:225MG/1.5ML;OTHER FREQUENCY:EVERY 30 DAYS;?
     Route: 058
     Dates: start: 20210415

REACTIONS (2)
  - Product storage error [None]
  - Drug ineffective [None]

NARRATIVE: CASE EVENT DATE: 20210811
